FAERS Safety Report 4805467-2 (Version None)
Quarter: 2005Q4

REPORT INFORMATION
  Report Type: 
  Country: None (occurrence: None)
  Receive Date: 20051018
  Receipt Date: 20051003
  Transmission Date: 20060501
  Serious: Yes (Hospitalization)
  Sender: FDA-Public Use
  Company Number: GB-2005-020421

PATIENT
  Sex: Female

DRUGS (9)
  1. YASMIN [Suspect]
     Indication: ORAL CONTRACEPTION
     Dosage: 1 TAB(S), 21D/29D, ORAL
     Route: 048
  2. AZATHIOPRINE [Suspect]
     Indication: SYSTEMIC LUPUS ERYTHEMATOSUS
     Dosage: 100 MG, 1X/DAY, ORAL
     Route: 048
     Dates: start: 20030101
  3. OMEPRAZOLE [Concomitant]
  4. LORATADINE [Concomitant]
  5. ERYTHROCIN STEARATE [Suspect]
     Indication: FURUNCLE
     Dosage: 500 MG, 2X/DAY, ORAL
     Route: 048
  6. HYDROXYCHLOROQUINE SULFATE [Suspect]
     Indication: SYSTEMIC LUPUS ERYTHEMATOSUS
     Dosage: 400 MG, 1X/DAY, ORAL
     Route: 048
  7. ETODOLAC [Suspect]
     Indication: SYSTEMIC LUPUS ERYTHEMATOSUS
     Dosage: 600 MG, 1X/DAY, ORAL
     Route: 048
  8. SENNA (SENNA ALEXANDRINA) [Concomitant]
  9. DIHYDROCODEINE (DIHYDROCODEINE) [Concomitant]

REACTIONS (1)
  - PANCREATITIS [None]
